FAERS Safety Report 6749837-4 (Version None)
Quarter: 2010Q2

REPORT INFORMATION
  Report Type: 
  Country: None (occurrence: None)
  Receive Date: 20100601
  Receipt Date: 20100525
  Transmission Date: 20101027
  Serious: Yes (Life-Threatening)
  Sender: FDA-Public Use
  Company Number: FR-ASTRAZENECA-2010SE23604

PATIENT
  Age: 612 Month
  Sex: Male

DRUGS (4)
  1. DIPRIVAN [Suspect]
     Route: 042
     Dates: start: 20091201, end: 20091201
  2. CELOCURINE [Suspect]
     Route: 042
     Dates: start: 20091201, end: 20091201
  3. NORCURON [Suspect]
     Route: 042
     Dates: start: 20091201, end: 20091201
  4. SUFENTA PRESERVATIVE FREE [Suspect]
     Route: 042
     Dates: start: 20091201, end: 20091201

REACTIONS (1)
  - ANAPHYLACTIC SHOCK [None]
